FAERS Safety Report 9200753 (Version 1)
Quarter: 2013Q1

REPORT INFORMATION
  Report Type: Spontaneous
  Country: US (occurrence: None)
  Receive Date: 20130328
  Receipt Date: 20130328
  Transmission Date: 20140127
  Serious: No
  Sender: FDA-Public Use
  Company Number: None

PATIENT
  Age: 82 Year
  Sex: Female
  Weight: 70.31 kg

DRUGS (2)
  1. CELESTONE [Suspect]
  2. TRAMADOL [Suspect]

REACTIONS (4)
  - Rheumatoid arthritis [None]
  - Muscle spasms [None]
  - Asthenia [None]
  - Insomnia [None]
